FAERS Safety Report 7605266-2 (Version None)
Quarter: 2011Q3

REPORT INFORMATION
  Report Type: 
  Country: None (occurrence: None)
  Receive Date: 20110712
  Receipt Date: 20110712
  Transmission Date: 20111222
  Serious: Yes (Other)
  Sender: FDA-Public Use
  Company Number: None

PATIENT
  Age: 44 Year
  Sex: Female
  Weight: 95 kg

DRUGS (1)
  1. DALFAMPRIDINE [Suspect]
     Dosage: PO
     Route: 048
     Dates: start: 20101230, end: 20110207

REACTIONS (2)
  - DIZZINESS [None]
  - ASTHENIA [None]
